FAERS Safety Report 8514759-5 (Version None)
Quarter: 2012Q3

REPORT INFORMATION
  Report Type: 
  Country: None (occurrence: None)
  Receive Date: 20120717
  Receipt Date: 20120711
  Transmission Date: 20120928
  Serious: Yes (Hospitalization)
  Sender: FDA-Public Use
  Company Number: US-BAYER-2012-042598

PATIENT
  Age: 17 Year
  Sex: Female
  Weight: 78.458 kg

DRUGS (6)
  1. YASMIN [Suspect]
     Indication: CONTRACEPTION
     Dosage: UNK
     Dates: start: 20060309, end: 20070405
  2. PROPOXYPHENE NAPSYLATE W/PARACETAMOL [Concomitant]
     Dosage: 100/650MG
     Dates: start: 20070226
  3. FLEXERIL [Concomitant]
     Indication: MUSCLE RELAXANT THERAPY
     Dosage: 10 MG, HS
     Route: 048
     Dates: start: 20070404
  4. ANAPROX [Concomitant]
     Dosage: 550 MG, UNK
     Dates: start: 20070404
  5. NSAID'S [Concomitant]
     Dosage: OTC
  6. ANTIBIOTICS [Concomitant]

REACTIONS (6)
  - DEEP VEIN THROMBOSIS [None]
  - BACK PAIN [None]
  - PAIN IN EXTREMITY [None]
  - INJURY [None]
  - PULMONARY EMBOLISM [None]
  - PAIN [None]
